FAERS Safety Report 8955894 (Version 2)
Quarter: 2013Q1

REPORT INFORMATION
  Report Type: Spontaneous
  Country: US (occurrence: US)
  Receive Date: 20121210
  Receipt Date: 20130104
  Transmission Date: 20140127
  Serious: Yes (Hospitalization)
  Sender: FDA-Public Use
  Company Number: US-JNJFOC-20121200148

PATIENT
  Age: 67 None
  Sex: Female
  Weight: 80.29 kg

DRUGS (10)
  1. NUCYNTA IR [Suspect]
     Indication: PAIN
     Dosage: EVERY 4 HOURS
     Route: 048
     Dates: start: 20121022, end: 20121127
  2. NUCYNTA ER [Suspect]
     Indication: PAIN
     Dosage: EVERY 4 HOURS
     Route: 048
     Dates: start: 20121127
  3. SANDOZ FENTANYL TRANSDERMAL SYSTEM [Suspect]
     Indication: BACK PAIN
     Dosage: 50 UG/HR + 12.5 UG/HR + 12.5 UG/HR
     Route: 062
  4. SANDOZ FENTANYL TRANSDERMAL SYSTEM [Suspect]
     Indication: BACK PAIN
     Dosage: NDC 0781724255
     Route: 062
     Dates: start: 201211, end: 201211
  5. FLEXERIL [Suspect]
     Indication: PROCEDURAL PAIN
     Dosage: AS NEEDED
     Route: 048
     Dates: end: 20121022
  6. FLEXERIL [Suspect]
     Indication: PROCEDURAL PAIN
     Dosage: EVERY 8 HOURS
     Route: 048
     Dates: start: 20121025
  7. FLEXERIL [Suspect]
     Indication: MUSCLE SPASMS
     Dosage: AS NEEDED
     Route: 048
     Dates: end: 20121022
  8. FLEXERIL [Suspect]
     Indication: MUSCLE SPASMS
     Dosage: EVERY 8 HOURS
     Route: 048
     Dates: start: 20121025
  9. MYLAN [Suspect]
     Indication: PROCEDURAL PAIN
     Route: 062
     Dates: start: 20121031, end: 201211
  10. MYLAN [Suspect]
     Indication: PROCEDURAL PAIN
     Route: 062
     Dates: start: 20121025, end: 20121031

REACTIONS (4)
  - Spinal compression fracture [Recovered/Resolved]
  - Feeling abnormal [Unknown]
  - Headache [Recovered/Resolved]
  - Pain [Unknown]
